FAERS Safety Report 17429648 (Version 1)
Quarter: 2020Q1

REPORT INFORMATION
  Report Type: Spontaneous
  Country: JP (occurrence: JP)
  Receive Date: 20200218
  Receipt Date: 20200218
  Transmission Date: 20200409
  Serious: Yes (Hospitalization, Other)
  Sender: FDA-Public Use
  Company Number: JP-FERRINGPH-2020FE00876

PATIENT
  Age: 24 Year
  Sex: Female

DRUGS (5)
  1. FSH [Suspect]
     Active Substance: FOLLITROPIN
     Indication: ASSISTED REPRODUCTIVE TECHNOLOGY
     Dosage: 600 IU
     Route: 065
  2. MENOPUR [Suspect]
     Active Substance: FOLLITROPIN\LUTEINIZING HORMONE
     Indication: ASSISTED REPRODUCTIVE TECHNOLOGY
     Dosage: 750 IU
     Route: 065
  3. HCG [Suspect]
     Active Substance: GONADOTROPHIN, CHORIONIC
     Indication: ASSISTED REPRODUCTIVE TECHNOLOGY
     Dosage: 10000 IU
     Route: 065
  4. CABERGOLINE. [Suspect]
     Active Substance: CABERGOLINE
     Indication: PROPHYLAXIS
     Route: 065
  5. FSH [Suspect]
     Active Substance: FOLLITROPIN
     Indication: ASSISTED REPRODUCTIVE TECHNOLOGY
     Dosage: 150 IU
     Route: 065

REACTIONS (8)
  - Vein collapse [Unknown]
  - Urinary retention [Unknown]
  - Hydronephrosis [Unknown]
  - Dehydration [Unknown]
  - Ovarian enlargement [Unknown]
  - Abdominal pain lower [Unknown]
  - Hypophagia [Unknown]
  - Adnexa uteri pain [Unknown]
